FAERS Safety Report 9652037 (Version 1)
Quarter: 2013Q4

REPORT INFORMATION
  Report Type: Report from Study
  Country: US (occurrence: US)
  Receive Date: 20131029
  Receipt Date: 20131029
  Transmission Date: 20140711
  Serious: Yes (Other)
  Sender: FDA-Public Use
  Company Number: US-ROCHE-1293554

PATIENT
  Sex: Male
  Weight: 98.3 kg

DRUGS (2)
  1. NUTROPIN [Suspect]
     Indication: GROWTH HORMONE DEFICIENCY
     Route: 058
  2. LEVOTHYROXINE [Concomitant]
     Route: 048

REACTIONS (3)
  - Sleep apnoea syndrome [Unknown]
  - Blood thyroid stimulating hormone abnormal [Unknown]
  - Weight increased [Unknown]
